FAERS Safety Report 9616059 (Version 5)
Quarter: 2014Q2

REPORT INFORMATION
  Report Type: Spontaneous
  Country: DK (occurrence: DK)
  Receive Date: 20131011
  Receipt Date: 20140612
  Transmission Date: 20141212
  Serious: Yes (Death, Life-Threatening)
  Sender: FDA-Public Use
  Company Number: DK-PFIZER INC-2013288628

PATIENT
  Age: 1 Year
  Sex: Female
  Weight: 9 kg

DRUGS (13)
  1. DIFLUCAN [Suspect]
     Indication: COMBINED IMMUNODEFICIENCY
     Dosage: 2 ML, QD
     Route: 048
     Dates: start: 201302
  2. MYAMBUTOL [Interacting]
     Indication: DISSEMINATED TUBERCULOSIS
     Dosage: 200 MG, QD
     Route: 048
     Dates: start: 20130524
  3. BIKLIN [Interacting]
     Indication: DISSEMINATED TUBERCULOSIS
     Dosage: 175 MG, QD
     Route: 042
     Dates: start: 20130524
  4. AVELOX [Interacting]
     Indication: DISSEMINATED TUBERCULOSIS
     Dosage: 90 MG, QD
     Route: 042
     Dates: start: 20130524
  5. EREMFAT [Interacting]
     Indication: DISSEMINATED TUBERCULOSIS
     Dosage: 175 MG, DAILY
     Route: 042
     Dates: start: 20130524
  6. ISONIAZID [Interacting]
     Indication: DISSEMINATED TUBERCULOSIS
     Dosage: 135 MG, QD
     Route: 042
     Dates: start: 20130524
  7. VOLTAREN [Interacting]
     Indication: PAIN
     Dosage: 12.5 MG AS NEEDED (WHEN NECESSARY, MAXIMUM 3 X DAILY)
     Route: 054
     Dates: start: 201305
  8. PARACETAMOL [Interacting]
     Indication: PAIN
     Dosage: 5 ML, AS NEEDED, STRENGTH: 24 MG/ML
     Route: 048
     Dates: start: 201302
  9. ZOVIR [Interacting]
     Indication: COMBINED IMMUNODEFICIENCY
     Dosage: 2.5 ML, BID
     Route: 048
     Dates: start: 201302
  10. BACTRIM [Interacting]
     Indication: COMBINED IMMUNODEFICIENCY
     Dosage: 5 ML,  2X/WEEK (1 X DAY SATURDAYS AND SUNDAYS)
     Route: 048
     Dates: start: 201302
  11. PROLEUKIN [Interacting]
     Indication: DISSEMINATED TUBERCULOSIS
     Dosage: 0.01 MILLIONIU, DAILY
     Route: 058
     Dates: start: 20130822
  12. PROLEUKIN [Interacting]
     Dosage: 0.27 MILLIONIU, DAILY
     Route: 058
  13. PRIVIGEN [Concomitant]
     Indication: COMBINED IMMUNODEFICIENCY
     Dosage: UNK
     Dates: start: 201302

REACTIONS (7)
  - Respiratory arrest [Fatal]
  - Cardiac arrest [Fatal]
  - Dyskinesia [Unknown]
  - Abdominal distension [Unknown]
  - Oedema peripheral [Unknown]
  - Vomiting [Unknown]
  - Drug interaction [Unknown]
